FAERS Safety Report 10929551 (Version 1)
Quarter: 2015Q1

REPORT INFORMATION
  Report Type: Spontaneous
  Country: US (occurrence: US)
  Receive Date: 20150319
  Receipt Date: 20150319
  Transmission Date: 20150721
  Serious: Yes (Life-Threatening, Hospitalization, Other)
  Sender: FDA-Public Use
  Company Number: US-ACTAVIS-2015-04883

PATIENT
  Age: 86 Year
  Sex: Female

DRUGS (1)
  1. ALENDRONATE SODIUM (WATSON LABORATORIES) [Suspect]
     Active Substance: ALENDRONATE SODIUM
     Indication: OSTEOPOROSIS
     Dosage: UNKNOWN
     Route: 048

REACTIONS (5)
  - Delirium [Unknown]
  - Dehydration [Unknown]
  - Coma [Unknown]
  - Hypertensive emergency [Recovered/Resolved]
  - Stomatitis [Unknown]
